FAERS Safety Report 5487777-1 (Version None)
Quarter: 2007Q3

REPORT INFORMATION
  Report Type: 
  Country: None (occurrence: None)
  Receive Date: 20070925
  Receipt Date: 20070807
  Transmission Date: 20080115
  Serious: No
  Sender: FDA-Public Use
  Company Number: 2007US001853

PATIENT
  Sex: Female

DRUGS (6)
  1. VESICARE [Suspect]
     Indication: DRUG USE FOR UNKNOWN INDICATION
     Dosage: 5 MG, UID/QD, ORAL
     Route: 048
     Dates: start: 20070801
  2. IMDUR [Concomitant]
  3. NITRO-SPRAY (ISOSORBIDE DINITRATE) [Concomitant]
  4. CARDIAC THERAPY [Concomitant]
  5. CHOLESTEROL- AND TRIGLYCERIDE REDUCERS [Concomitant]
  6. ANTIHYPERTENSIVES [Concomitant]

REACTIONS (2)
  - DRUG INEFFECTIVE [None]
  - DYSURIA [None]
